FAERS Safety Report 25377302 (Version 2)
Quarter: 2025Q3

REPORT INFORMATION
  Report Type: Spontaneous
  Country: JP (occurrence: JP)
  Receive Date: 20250530
  Receipt Date: 20250724
  Transmission Date: 20251020
  Serious: Yes (Other)
  Sender: ROCHE
  Company Number: JP-CHUGAI-2025016211

PATIENT
  Sex: Male
  Weight: 52 kg

DRUGS (4)
  1. AVASTIN [Suspect]
     Active Substance: BEVACIZUMAB
     Indication: Hepatocellular carcinoma
     Dosage: UNK
     Route: 042
     Dates: start: 202504
  2. AVASTIN [Suspect]
     Active Substance: BEVACIZUMAB
     Dosage: UNK
     Route: 042
     Dates: start: 2025
  3. TECENTRIQ [Suspect]
     Active Substance: ATEZOLIZUMAB
     Indication: Hepatocellular carcinoma
     Dosage: UNK
     Route: 042
     Dates: start: 202504, end: 2025
  4. TECENTRIQ [Suspect]
     Active Substance: ATEZOLIZUMAB
     Route: 042
     Dates: start: 2025

REACTIONS (19)
  - Bedridden [Recovering/Resolving]
  - Gait disturbance [Recovering/Resolving]
  - Nervous system disorder [Recovering/Resolving]
  - Malaise [Recovering/Resolving]
  - Pain in extremity [Recovering/Resolving]
  - C-reactive protein increased [Unknown]
  - Blood pressure increased [Unknown]
  - Pyrexia [Recovering/Resolving]
  - Retinal oedema [Unknown]
  - Retinal haemorrhage [Unknown]
  - Abdominal distension [Unknown]
  - Impaired healing [Unknown]
  - Weight increased [Unknown]
  - Stomatitis [Unknown]
  - Oedema peripheral [Unknown]
  - White blood cell count decreased [Unknown]
  - Neutrophil count decreased [Unknown]
  - Red blood cell count decreased [Unknown]
  - Physical deconditioning [Unknown]

NARRATIVE: CASE EVENT DATE: 20250101
